FAERS Safety Report 7315227-9 (Version None)
Quarter: 2011Q1

REPORT INFORMATION
  Report Type: 
  Country: None (occurrence: None)
  Receive Date: 20110225
  Receipt Date: 20110216
  Transmission Date: 20110831
  Serious: Yes (Hospitalization)
  Sender: FDA-Public Use
  Company Number: DE-ROCHE-757011

PATIENT
  Sex: Female
  Weight: 75 kg

DRUGS (4)
  1. AMLODIPINE [Concomitant]
  2. BEVACIZUMAB [Suspect]
     Indication: BREAST CANCER
     Dosage: DOSE AS PER PROTOCOL; DAY 1; LAST DOSE PRIOR TO SAE: 12 JANUARY 2011
     Route: 042
     Dates: start: 20100819
  3. CAPECITABINE [Suspect]
     Indication: BREAST CANCER
     Dosage: DOSE AS PER PROTOCOL; DAYS 1-14; LAST DOSE PRIOR TO SAE: 25 JANUARY 2011
     Route: 048
     Dates: start: 20100820
  4. BISOPROLOL FUMARATE [Concomitant]

REACTIONS (1)
  - HYPERCALCAEMIA [None]
